FAERS Safety Report 21630917 (Version 1)
Quarter: 2022Q4

REPORT INFORMATION
  Report Type: Spontaneous
  Country: KR (occurrence: KR)
  Receive Date: 20221123
  Receipt Date: 20221123
  Transmission Date: 20230113
  Serious: Yes (Hospitalization)
  Sender: FDA-Public Use
  Company Number: KR-CELLTRION INC.-2022KR014107

PATIENT

DRUGS (7)
  1. INFLIXIMAB [Suspect]
     Active Substance: INFLIXIMAB
     Indication: Crohn^s disease
     Dosage: 120MG, SC
     Route: 058
     Dates: start: 20220823
  2. PROBIOTICS NOS [Concomitant]
     Active Substance: PROBIOTICS NOS
     Dosage: 1TAB, BID
     Dates: start: 202109
  3. PENTASA [Concomitant]
     Active Substance: MESALAMINE
     Dosage: 1TAB, BID
     Dates: start: 202109
  4. ISOTINON [Concomitant]
     Dosage: 1CAP, BID
     Dates: start: 202109, end: 20221114
  5. ISOTINON [Concomitant]
     Dosage: 1CAP, ONCE TWO DAYS
     Dates: start: 20221115
  6. ACETYLCYSTEINE [Concomitant]
     Active Substance: ACETYLCYSTEINE
     Dosage: 1TAB, BID (START DATE: ONE MONTH AGO)
  7. NOLTEC [Concomitant]
     Dosage: 1TAB, QD (STRAT DATE: ONE MONTH AGO)

REACTIONS (2)
  - Road traffic accident [Not Recovered/Not Resolved]
  - Injection site pain [Recovered/Resolved]

NARRATIVE: CASE EVENT DATE: 20220823
